FAERS Safety Report 24602899 (Version 1)
Quarter: 2024Q4

REPORT INFORMATION
  Report Type: Spontaneous
  Country: US (occurrence: US)
  Receive Date: 20241111
  Receipt Date: 20241111
  Transmission Date: 20250114
  Serious: No
  Sender: ROCHE
  Company Number: US-ROCHE-10000126472

PATIENT

DRUGS (1)
  1. OCREVUS [Suspect]
     Active Substance: OCRELIZUMAB
     Indication: Multiple sclerosis
     Route: 042
     Dates: end: 20240903

REACTIONS (3)
  - Pain in extremity [Unknown]
  - Peripheral coldness [Unknown]
  - Vascular access site occlusion [Unknown]

NARRATIVE: CASE EVENT DATE: 20240903
